FAERS Safety Report 4870404-1 (Version None)
Quarter: 2005Q4

REPORT INFORMATION
  Report Type: 
  Country: None (occurrence: None)
  Receive Date: 20051228
  Receipt Date: 20051207
  Transmission Date: 20060501
  Serious: Yes (Hospitalization, Other)
  Sender: FDA-Public Use
  Company Number: US200512001469

PATIENT
  Age: 84 Year
  Sex: Female

DRUGS (3)
  1. FORTEO [Suspect]
     Dates: start: 20051001
  2. FORTEO [Concomitant]
  3. ATENOLOL [Concomitant]

REACTIONS (4)
  - DEHYDRATION [None]
  - HEART RATE INCREASED [None]
  - HEART RATE IRREGULAR [None]
  - NEPHROLITHIASIS [None]
